FAERS Safety Report 6307375-7 (Version None)
Quarter: 2009Q3

REPORT INFORMATION
  Report Type: 
  Country: None (occurrence: None)
  Receive Date: 20090813
  Receipt Date: 20090806
  Transmission Date: 20100115
  Serious: No
  Sender: FDA-Public Use
  Company Number: US-JNJFOC-20090802659

PATIENT
  Sex: Female
  Weight: 108.86 kg

DRUGS (3)
  1. FENTANYL TRANSDERMAL SYSTEM [Suspect]
     Indication: MYALGIA
     Dosage: ONE 100 UG/HR PATCH AND ONE 25 UG/HR PATCH
     Route: 062
  2. SOMA [Concomitant]
     Indication: FIBROMYALGIA
     Route: 048
  3. XANAX [Concomitant]
     Indication: ANXIETY
     Dosage: ONCE EVERY 8 HOURS AS NEEDED
     Route: 048

REACTIONS (1)
  - WRONG TECHNIQUE IN DRUG USAGE PROCESS [None]
